FAERS Safety Report 19247572 (Version 1)
Quarter: 2021Q2

REPORT INFORMATION
  Report Type: Spontaneous
  Country: US (occurrence: US)
  Receive Date: 20210512
  Receipt Date: 20210512
  Transmission Date: 20210717
  Serious: Yes (Hospitalization)
  Sender: FDA-Public Use
  Company Number: None

PATIENT
  Age: 7 Year
  Sex: Male

DRUGS (7)
  1. SILDENAFIL. [Concomitant]
     Active Substance: SILDENAFIL
  2. METHIMAZOLE. [Concomitant]
     Active Substance: METHIMAZOLE
  3. BOSENTAN. [Concomitant]
     Active Substance: BOSENTAN
  4. REVATIO [Concomitant]
     Active Substance: SILDENAFIL CITRATE
  5. AMBRISENTAN [Suspect]
     Active Substance: AMBRISENTAN
     Indication: PULMONARY HYPERTENSION
     Route: 048
     Dates: start: 20210120
  6. TAPAZOLE [Concomitant]
     Active Substance: METHIMAZOLE
  7. TRACLEER [Concomitant]
     Active Substance: BOSENTAN

REACTIONS (2)
  - Therapy interrupted [None]
  - Dental care [None]

NARRATIVE: CASE EVENT DATE: 20210510
